FAERS Safety Report 9550782 (Version 1)
Quarter: 2013Q3

REPORT INFORMATION
  Report Type: Spontaneous
  Country: US (occurrence: US)
  Receive Date: 20130924
  Receipt Date: 20130924
  Transmission Date: 20140515
  Serious: No
  Sender: FDA-Public Use
  Company Number: US-SANOFI-AVENTIS-2013SA048027

PATIENT
  Age: 54 Year
  Sex: Female
  Weight: 46 kg

DRUGS (1)
  1. AUBAGIO [Suspect]
     Indication: MULTIPLE SCLEROSIS
     Dates: start: 20130318

REACTIONS (2)
  - Influenza like illness [Recovered/Resolved]
  - Alopecia [Unknown]
